FAERS Safety Report 25202909 (Version 2)
Quarter: 2025Q2

REPORT INFORMATION
  Report Type: Spontaneous
  Country: BE (occurrence: BE)
  Receive Date: 20250416
  Receipt Date: 20250428
  Transmission Date: 20250717
  Serious: No
  Sender: TEVA
  Company Number: BE-ABBVIE-6221395

PATIENT
  Age: 82 Year
  Sex: Male

DRUGS (1)
  1. ACITRETIN [Suspect]
     Active Substance: ACITRETIN
     Indication: Leukoplakia
     Route: 065

REACTIONS (1)
  - Off label use [Unknown]
